FAERS Safety Report 9633248 (Version 1)
Quarter: 2013Q4

REPORT INFORMATION
  Report Type: Spontaneous
  Country: US (occurrence: None)
  Receive Date: 20131018
  Receipt Date: 20131018
  Transmission Date: 20140711
  Serious: No
  Sender: FDA-Public Use
  Company Number: None

PATIENT
  Age: 29 Year
  Sex: Male
  Weight: 74 kg

DRUGS (1)
  1. PROPECIA 1MG MERCK [Suspect]
     Indication: ALOPECIA
     Route: 048
     Dates: end: 20131013

REACTIONS (1)
  - Panic attack [None]
